FAERS Safety Report 4464714-X (Version None)
Quarter: 2004Q4

REPORT INFORMATION
  Report Type: 
  Country: None (occurrence: None)
  Receive Date: 20041004
  Receipt Date: 20040923
  Transmission Date: 20050328
  Serious: Yes (Hospitalization)
  Sender: FDA-Public Use
  Company Number: US-JNJFOC-20040908168

PATIENT
  Age: 49 Year
  Sex: Female

DRUGS (1)
  1. DURAGESIC [Suspect]
     Route: 062
     Dates: start: 20030101

REACTIONS (1)
  - ANKLE FRACTURE [None]
